FAERS Safety Report 25627989 (Version 1)
Quarter: 2025Q3

REPORT INFORMATION
  Report Type: Spontaneous
  Country: US (occurrence: US)
  Receive Date: 20250731
  Receipt Date: 20250731
  Transmission Date: 20251021
  Serious: No
  Sender: BAYER HEALTHCARE LLC
  Company Number: US-BAYER-2025A097989

PATIENT

DRUGS (1)
  1. CLARITIN LIQUI-GELS [Suspect]
     Active Substance: LORATADINE
     Indication: Pruritus
     Dosage: 1 DF, Q4HR
     Route: 048

REACTIONS (2)
  - Extra dose administered [Unknown]
  - Drug ineffective for unapproved indication [Unknown]
